FAERS Safety Report 4571513-7 (Version None)
Quarter: 2005Q1

REPORT INFORMATION
  Report Type: 
  Country: None (occurrence: None)
  Receive Date: 20050203
  Receipt Date: 20050203
  Transmission Date: 20050727
  Serious: No
  Sender: FDA-Public Use
  Company Number: None

PATIENT
  Sex: Male

DRUGS (2)
  1. TENORMIN [Suspect]
     Indication: CORONARY ARTERY DISEASE
     Dosage: 25 MG /QD
  2. TENORMIN [Suspect]
     Indication: HYPERTENSION
     Dosage: 25 MG /QD

REACTIONS (2)
  - PHARMACEUTICAL PRODUCT COMPLAINT [None]
  - RASH [None]
